APPROVED DRUG PRODUCT: DABIGATRAN ETEXILATE MESYLATE
Active Ingredient: DABIGATRAN ETEXILATE MESYLATE
Strength: EQ 150MG BASE
Dosage Form/Route: CAPSULE;ORAL
Application: A208067 | Product #002 | TE Code: AB
Applicant: MYLAN PHARMACEUTICALS INC
Approved: Feb 3, 2025 | RLD: No | RS: No | Type: RX